FAERS Safety Report 12335249 (Version 1)
Quarter: 2016Q2

REPORT INFORMATION
  Report Type: Spontaneous
  Country: US (occurrence: US)
  Receive Date: 20160504
  Receipt Date: 20160504
  Transmission Date: 20160815
  Serious: Yes (Death)
  Sender: FDA-Public Use
  Company Number: US-ASTRAZENECA-2011SE03517

PATIENT
  Age: 57 Year
  Sex: Female

DRUGS (1)
  1. ARIMIDEX [Suspect]
     Active Substance: ANASTROZOLE
     Route: 048

REACTIONS (5)
  - Musculoskeletal stiffness [Unknown]
  - Arthralgia [Unknown]
  - Bone pain [Unknown]
  - Nausea [Unknown]
  - Death [Fatal]
